FAERS Safety Report 22132961 (Version 2)
Quarter: 2023Q2

REPORT INFORMATION
  Report Type: Spontaneous
  Country: JP (occurrence: JP)
  Receive Date: 20230323
  Receipt Date: 20230411
  Transmission Date: 20230722
  Serious: Yes (Death, Other)
  Sender: FDA-Public Use
  Company Number: JP-SAKK-2023SA092113AA

PATIENT
  Age: 54 Year
  Sex: Male

DRUGS (3)
  1. THYMOGLOBULINE [Suspect]
     Active Substance: LAPINE T-LYMPHOCYTE IMMUNE GLOBULIN
     Indication: Aplastic anaemia
     Route: 041
  2. CYCLOSPORINE [Concomitant]
     Active Substance: CYCLOSPORINE
     Indication: Aplastic anaemia
     Route: 065
  3. ELTROMBOPAG OLAMINE [Concomitant]
     Active Substance: ELTROMBOPAG OLAMINE
     Indication: Aplastic anaemia
     Route: 065

REACTIONS (9)
  - Epstein-Barr virus associated lymphoproliferative disorder [Fatal]
  - Pyrexia [Fatal]
  - Visual impairment [Fatal]
  - Brain abscess [Fatal]
  - Jaundice [Fatal]
  - Oedema [Fatal]
  - C-reactive protein increased [Fatal]
  - Altered state of consciousness [Fatal]
  - Haemophagocytic lymphohistiocytosis [Fatal]
